FAERS Safety Report 10841288 (Version 1)
Quarter: 2015Q1

REPORT INFORMATION
  Report Type: Spontaneous
  Country: US (occurrence: US)
  Receive Date: 20150220
  Receipt Date: 20150220
  Transmission Date: 20150721
  Serious: Yes (Other)
  Sender: FDA-Public Use
  Company Number: US-ACCORD-028554

PATIENT
  Age: 13 Year
  Sex: Female

DRUGS (3)
  1. MERCAPTOPURINE. [Concomitant]
     Active Substance: MERCAPTOPURINE
     Indication: ACUTE LYMPHOCYTIC LEUKAEMIA
     Route: 048
  2. ARA-C [Concomitant]
     Active Substance: CYTARABINE
     Indication: ACUTE LYMPHOCYTIC LEUKAEMIA
     Route: 042
  3. METHOTREXATE [Suspect]
     Active Substance: METHOTREXATE
     Indication: ACUTE LYMPHOCYTIC LEUKAEMIA
     Dosage: 15 MG/DOSE??75 MG OF IT (5 STANDARD DOSES PER PROTOCOL)
     Route: 037

REACTIONS (7)
  - Mental disorder [Unknown]
  - Neurotoxicity [Unknown]
  - Mastication disorder [Unknown]
  - Hemiparesis [Unknown]
  - Gait disturbance [Unknown]
  - Dysarthria [Unknown]
  - Ataxia [Unknown]
